FAERS Safety Report 18718582 (Version 1)
Quarter: 2021Q1

REPORT INFORMATION
  Report Type: Spontaneous
  Country: US (occurrence: US)
  Receive Date: 20210108
  Receipt Date: 20210108
  Transmission Date: 20210419
  Serious: Yes (Other)
  Sender: FDA-Public Use
  Company Number: US-BAYER-2020-288014

PATIENT
  Age: 39 Year
  Sex: Male

DRUGS (1)
  1. PARACETAMOL [Suspect]
     Active Substance: ACETAMINOPHEN

REACTIONS (5)
  - Acute kidney injury [None]
  - Acute hepatic failure [None]
  - Hyperkalaemia [None]
  - Metabolic acidosis [None]
  - Overdose [None]
